FAERS Safety Report 9011785 (Version 1)
Quarter: 2012Q4

REPORT INFORMATION
  Report Type: Spontaneous
  Country: US (occurrence: None)
  Receive Date: 20121228
  Receipt Date: 20121228
  Transmission Date: 20130627
  Serious: Yes (Hospitalization)
  Sender: FDA-Public Use
  Company Number: 1541658

PATIENT
  Age: 38 Week
  Sex: Female

DRUGS (10)
  1. FENTANYL CITRATE [Suspect]
     Route: 064
  2. LIDOCAINE W/EPINEPHRINE [Concomitant]
  3. RINGERS LACTATE [Concomitant]
  4. SALINE [Concomitant]
  5. SODIUM CITRATE [Concomitant]
  6. BUPIVACAINE [Concomitant]
  7. TERBUTALINE [Concomitant]
  8. CEFAZOLIN [Concomitant]
  9. PROPOFOL [Concomitant]
  10. SUXAMETHONIUM CHLORIDE [Concomitant]

REACTIONS (5)
  - Maternal drugs affecting foetus [None]
  - Bradycardia foetal [None]
  - Caesarean section [None]
  - Premature separation of placenta [None]
  - Drug interaction [None]
